FAERS Safety Report 9414909 (Version 1)
Quarter: 2013Q3

REPORT INFORMATION
  Report Type: Report from Study
  Country: US (occurrence: US)
  Receive Date: 20130723
  Receipt Date: 20130723
  Transmission Date: 20140515
  Serious: Yes (Hospitalization)
  Sender: FDA-Public Use
  Company Number: US-SANOFI-AVENTIS-2013SA065282

PATIENT
  Age: 49 Year
  Sex: Female
  Weight: 81 kg

DRUGS (21)
  1. AUBAGIO [Suspect]
     Indication: MULTIPLE SCLEROSIS
     Route: 048
     Dates: start: 20130122
  2. AUBAGIO [Suspect]
     Indication: MULTIPLE SCLEROSIS
     Route: 048
     Dates: start: 20130401
  3. CYCLOBENZAPRINE [Concomitant]
     Route: 065
  4. LOSARTAN [Concomitant]
     Indication: BLOOD PRESSURE
     Route: 065
  5. ORAL ANTIDIABETICS [Concomitant]
     Route: 065
  6. RANITIDINE [Concomitant]
     Route: 065
  7. GABAPENTIN [Concomitant]
     Indication: NEURALGIA
     Route: 065
  8. POTASSIUM [Concomitant]
     Route: 048
  9. SIMVASTATIN [Concomitant]
     Route: 048
  10. ALL OTHER THERAPEUTIC PRODUCTS [Concomitant]
     Route: 048
  11. MAXALT /NET/ [Concomitant]
  12. MONTELUKAST [Concomitant]
     Route: 048
  13. MUPIROCIN [Concomitant]
  14. XOPENEX [Concomitant]
     Route: 065
  15. PREDNISOLONE [Concomitant]
  16. METFORMIN [Concomitant]
     Route: 048
  17. SYNTHROID [Concomitant]
  18. LEVOTHYROXINE [Concomitant]
     Route: 048
  19. DIAZEPAM [Concomitant]
     Route: 048
  20. ALBUTEROL [Concomitant]
  21. LISINOPRIL [Concomitant]
     Route: 048

REACTIONS (12)
  - Asthma [Not Recovered/Not Resolved]
  - Migraine [Not Recovered/Not Resolved]
  - Eye pain [Not Recovered/Not Resolved]
  - Diarrhoea [Not Recovered/Not Resolved]
  - Vomiting [Not Recovered/Not Resolved]
  - Abdominal distension [Not Recovered/Not Resolved]
  - Abdominal tenderness [Not Recovered/Not Resolved]
  - Dizziness [Not Recovered/Not Resolved]
  - Fall [Unknown]
  - Eating disorder [Not Recovered/Not Resolved]
  - Weight decreased [Not Recovered/Not Resolved]
  - Drug dose omission [Unknown]
